FAERS Safety Report 7337680-7 (Version None)
Quarter: 2011Q1

REPORT INFORMATION
  Report Type: 
  Country: None (occurrence: None)
  Receive Date: 20110224
  Receipt Date: 20110218
  Transmission Date: 20110831
  Serious: Yes (Death, Hospitalization)
  Sender: FDA-Public Use
  Company Number: TAJPN-11-0118

PATIENT
  Age: 76 Year
  Sex: Female
  Weight: 65 kg

DRUGS (8)
  1. GRANISETRON (GRANISETRON) [Concomitant]
  2. ACETAMINOPHEN [Concomitant]
  3. COCARL [Concomitant]
  4. ABRAXANE [Suspect]
     Indication: BREAST CANCER METASTATIC
     Dosage: 416 MG)
     Dates: start: 20110202, end: 20110202
  5. NOLVADEX [Concomitant]
  6. MOHRUS TAPE [Concomitant]
  7. PREDNISOLONE [Suspect]
     Indication: PRODUCT USED FOR UNKNOWN INDICATION
     Dosage: ORAL
     Route: 048
  8. AVAPRO [Concomitant]

REACTIONS (17)
  - ACIDOSIS [None]
  - APNOEA [None]
  - NEUTROPHIL COUNT DECREASED [None]
  - UPPER GASTROINTESTINAL HAEMORRHAGE [None]
  - BLOOD PRESSURE DECREASED [None]
  - MELAENA [None]
  - HAEMATEMESIS [None]
  - SHOCK [None]
  - CARDIO-RESPIRATORY ARREST [None]
  - RED BLOOD CELL COUNT DECREASED [None]
  - HAEMOGLOBIN DECREASED [None]
  - DECREASED APPETITE [None]
  - LOSS OF CONSCIOUSNESS [None]
  - HEART RATE DECREASED [None]
  - PULMONARY EMBOLISM [None]
  - PULSELESS ELECTRICAL ACTIVITY [None]
  - URINE OUTPUT DECREASED [None]
